FAERS Safety Report 15110383 (Version 1)
Quarter: 2018Q3

REPORT INFORMATION
  Report Type: Spontaneous
  Country: DE (occurrence: DE)
  Receive Date: 20180705
  Receipt Date: 20180705
  Transmission Date: 20181010
  Serious: Yes (Hospitalization)
  Sender: FDA-Public Use
  Company Number: PHHY2018DE035446

PATIENT
  Age: 92 Year
  Sex: Female

DRUGS (5)
  1. METAMIZOL [Concomitant]
     Active Substance: METAMIZOLE SODIUM
     Indication: PRODUCT USED FOR UNKNOWN INDICATION
     Dosage: 500 MG, BID (1?0?1?0)
     Route: 048
  2. PANTOPRAZOL [Concomitant]
     Active Substance: PANTOPRAZOLE SODIUM
     Indication: PRODUCT USED FOR UNKNOWN INDICATION
     Dosage: 40 MG, QD (1?0?0?0)
     Route: 048
  3. DONEPEZIL. [Concomitant]
     Active Substance: DONEPEZIL
     Indication: PRODUCT USED FOR UNKNOWN INDICATION
     Dosage: 5 MG, QD (1?0?0?0)
     Route: 048
  4. TRIAMTERENE+HYDROCHLOROTHIAZIDE SANDOZ [Suspect]
     Active Substance: HYDROCHLOROTHIAZIDE\TRIAMTERENE
     Indication: PRODUCT USED FOR UNKNOWN INDICATION
     Dosage: 75 MG, QD (1?0?0?0)
     Route: 048
  5. LAMOTRIGIN [Concomitant]
     Active Substance: LAMOTRIGINE
     Indication: PRODUCT USED FOR UNKNOWN INDICATION
     Dosage: 50 MG, BID (1?0?1?0)
     Route: 048

REACTIONS (14)
  - Rales [Unknown]
  - Hyponatraemia [Unknown]
  - General physical health deterioration [Unknown]
  - Gait disturbance [Unknown]
  - Oedema peripheral [Unknown]
  - Personality change [Unknown]
  - Dehydration [Unknown]
  - Electrolyte imbalance [Unknown]
  - Localised infection [Unknown]
  - Atrial fibrillation [Unknown]
  - Dry skin [Unknown]
  - Fall [Unknown]
  - Language disorder [Unknown]
  - Anaemia [Unknown]
